FAERS Safety Report 18947545 (Version 1)
Quarter: 2021Q1

REPORT INFORMATION
  Report Type: Spontaneous
  Country: SK (occurrence: SK)
  Receive Date: 20210227
  Receipt Date: 20210227
  Transmission Date: 20210420
  Serious: Yes (Disabling)
  Sender: FDA-Public Use
  Company Number: SK-ABBVIE-21K-260-3786265-00

PATIENT
  Sex: Male
  Weight: 120 kg

DRUGS (1)
  1. HUMIRA [Suspect]
     Active Substance: ADALIMUMAB
     Indication: PRODUCT USED FOR UNKNOWN INDICATION
     Route: 058

REACTIONS (1)
  - IIIrd nerve paresis [Unknown]

NARRATIVE: CASE EVENT DATE: 20210110
